FAERS Safety Report 22362031 (Version 1)
Quarter: 2023Q2

REPORT INFORMATION
  Report Type: Spontaneous
  Country: BE (occurrence: BE)
  Receive Date: 20230524
  Receipt Date: 20230524
  Transmission Date: 20230722
  Serious: Yes (Hospitalization, Other)
  Sender: FDA-Public Use
  Company Number: BE-009507513-2304BEL001425

PATIENT
  Age: 34 Year
  Sex: Female
  Weight: 60 kg

DRUGS (5)
  1. CARBOPLATIN [Suspect]
     Active Substance: CARBOPLATIN
     Indication: Triple negative breast cancer
     Dosage: WEEKLY (Q1W), 12 CYCLES
  2. TAXOTERE [Suspect]
     Active Substance: DOCETAXEL
     Indication: Triple negative breast cancer
     Dosage: UNK
     Dates: start: 20221207, end: 20230215
  3. TAXOL [Suspect]
     Active Substance: PACLITAXEL
     Indication: Triple negative breast cancer
     Dosage: WEEKLY (Q1W), 12 CYCLES
  4. CYCLOPHOSPHAMIDE [Suspect]
     Active Substance: CYCLOPHOSPHAMIDE
     Indication: Triple negative breast cancer
     Dosage: UNK
     Dates: start: 20221207, end: 20230215
  5. KEYTRUDA [Suspect]
     Active Substance: PEMBROLIZUMAB
     Indication: Triple negative breast cancer
     Dosage: EVERY THREE WEEKS (Q3W)
     Route: 042
     Dates: start: 20221207, end: 20230208

REACTIONS (8)
  - Device related bacteraemia [Recovered/Resolved]
  - Lung abscess [Recovered/Resolved]
  - Staphylococcal bacteraemia [Recovered/Resolved]
  - Pancytopenia [Recovered/Resolved]
  - Liver abscess [Recovered/Resolved]
  - Septic embolus [Unknown]
  - Catheter placement [Unknown]
  - Off label use [Unknown]

NARRATIVE: CASE EVENT DATE: 20230101
